FAERS Safety Report 8099992-1 (Version None)
Quarter: 2012Q1

REPORT INFORMATION
  Report Type: 
  Country: None (occurrence: None)
  Receive Date: 20120129
  Receipt Date: 20111118
  Transmission Date: 20120608
  Serious: No
  Sender: FDA-Public Use
  Company Number: US-ABBOTT-11P-163-0875846-00

PATIENT
  Sex: Female
  Weight: 77.18 kg

DRUGS (2)
  1. HUMIRA [Suspect]
     Indication: PSORIATIC ARTHROPATHY
     Dates: start: 20110901
  2. HUMIRA [Suspect]
     Indication: PSORIASIS

REACTIONS (8)
  - MALAISE [None]
  - INJECTION SITE PAIN [None]
  - PAIN [None]
  - INJECTION SITE HAEMORRHAGE [None]
  - MYALGIA [None]
  - MOOD ALTERED [None]
  - DRUG EFFECT DECREASED [None]
  - DRUG INEFFECTIVE [None]
